FAERS Safety Report 6208773-2 (Version None)
Quarter: 2009Q2

REPORT INFORMATION
  Report Type: 
  Country: None (occurrence: None)
  Receive Date: 20090529
  Receipt Date: 20090520
  Transmission Date: 20091009
  Serious: Yes (Hospitalization, Other)
  Sender: FDA-Public Use
  Company Number: MY-AVENTIS-200914373GDDC

PATIENT
  Age: 54 Year
  Sex: Female

DRUGS (6)
  1. ARAVA [Suspect]
     Route: 048
     Dates: start: 20070601, end: 20071001
  2. ARAVA [Suspect]
     Route: 048
     Dates: start: 20071001, end: 20080701
  3. ARAVA [Suspect]
     Route: 048
     Dates: start: 20090305, end: 20090416
  4. METHOTREXATE [Concomitant]
     Dosage: DOSE: UNK
  5. METHOTREXATE [Concomitant]
     Dosage: DOSE: UNK
     Dates: start: 20080701, end: 20090423
  6. PREDNISOLONE [Concomitant]
     Indication: RHEUMATOID ARTHRITIS
     Route: 048
     Dates: end: 20090301

REACTIONS (1)
  - ALANINE AMINOTRANSFERASE INCREASED [None]
